FAERS Safety Report 8569576-7 (Version None)
Quarter: 2012Q3

REPORT INFORMATION
  Report Type: 
  Country: None (occurrence: None)
  Receive Date: 20120803
  Receipt Date: 20120126
  Transmission Date: 20120928
  Serious: No
  Sender: FDA-Public Use
  Company Number: US-ABBOTT-12P-163-0898465-00

PATIENT
  Sex: Male

DRUGS (6)
  1. UROCIT-K [Concomitant]
     Indication: PRODUCT USED FOR UNKNOWN INDICATION
     Route: 048
  2. UNKNOWN MEDICATIONS [Concomitant]
     Indication: PRODUCT USED FOR UNKNOWN INDICATION
  3. NIASPAN [Suspect]
     Dosage: ONCE DAILY AT BEDTIME
     Route: 048
     Dates: start: 20111201
  4. NIASPAN [Suspect]
     Dosage: ONCE DAILY AT BEDTIME
     Route: 048
  5. NIASPAN [Suspect]
     Indication: HIGH DENSITY LIPOPROTEIN DECREASED
     Dosage: ONCE DAILY AT BEDTIME
     Route: 048
     Dates: start: 20110101
  6. ASPIRIN [Concomitant]
     Indication: PRODUCT USED FOR UNKNOWN INDICATION
     Route: 048

REACTIONS (3)
  - CHEST PAIN [None]
  - INSOMNIA [None]
  - MALAISE [None]
